FAERS Safety Report 6142916-4 (Version None)
Quarter: 2009Q2

REPORT INFORMATION
  Report Type: 
  Country: None (occurrence: None)
  Receive Date: 20090403
  Receipt Date: 20090326
  Transmission Date: 20091009
  Serious: Yes (Life-Threatening)
  Sender: FDA-Public Use
  Company Number: TW-TEVA-189507ISR

PATIENT
  Sex: Male
  Weight: 64 kg

DRUGS (9)
  1. PACLITAXEL [Suspect]
     Indication: NON-SMALL CELL LUNG CANCER
     Dates: start: 20090218, end: 20090218
  2. CP-751,871 [Suspect]
     Indication: NON-SMALL CELL LUNG CANCER
  3. CARBOPLATIN [Suspect]
     Indication: NON-SMALL CELL LUNG CANCER
     Dates: start: 20090218, end: 20090218
  4. ROXITHROMYCIN [Concomitant]
     Dates: start: 20090307, end: 20090309
  5. CEFOTAXIME [Concomitant]
  6. METOCLOPRAMIDE [Concomitant]
  7. AMBROXOL HYDROCHLORIDE [Concomitant]
  8. PYRIDOXINE [Concomitant]
  9. TRANEXAMIC ACID [Concomitant]

REACTIONS (2)
  - CEREBROVASCULAR ACCIDENT [None]
  - PNEUMONIA [None]
